FAERS Safety Report 14328720 (Version 2)
Quarter: 2018Q2

REPORT INFORMATION
  Report Type: Report from Study
  Country: FR (occurrence: FR)
  Receive Date: 20171227
  Receipt Date: 20180420
  Transmission Date: 20180711
  Serious: Yes (Other)
  Sender: FDA-Public Use
  Company Number: FR-ASTELLAS-2017US055588

PATIENT
  Age: 16 Year
  Sex: Male

DRUGS (1)
  1. TACROLIMUS. [Suspect]
     Active Substance: TACROLIMUS
     Indication: STEM CELL TRANSPLANT
     Dosage: 0.5 MG TO 1.5 MG, TWICE DAILY (MORNING AND EVENING (ACCORDING TO THE TROUGH LEVEL OF TACROLIMUS)
     Route: 048
     Dates: start: 20131129, end: 20140625

REACTIONS (4)
  - Off label use [Unknown]
  - Systemic bacterial infection [Recovered/Resolved]
  - Arthritis salmonella [Recovered/Resolved]
  - Salmonella bacteraemia [Recovered/Resolved]

NARRATIVE: CASE EVENT DATE: 20131219
